FAERS Safety Report 24434240 (Version 2)
Quarter: 2024Q4

REPORT INFORMATION
  Report Type: Spontaneous
  Country: US (occurrence: US)
  Receive Date: 20241014
  Receipt Date: 20241029
  Transmission Date: 20250115
  Serious: Yes (Hospitalization, Other)
  Sender: NORTHSTAR
  Company Number: US-NORTHSTAR RX LLC-US-2024NSR000104

PATIENT
  Age: 6 Year
  Sex: Female
  Weight: 24.5 kg

DRUGS (3)
  1. ALLOPURINOL [Suspect]
     Active Substance: ALLOPURINOL
     Indication: Prophylaxis
     Dosage: 10 MG/KG, QD
     Route: 065
  2. DEXAMETHASONE [Concomitant]
     Active Substance: DEXAMETHASONE
     Indication: Acute lymphocytic leukaemia
     Dosage: UNK
     Route: 065
  3. VINCRISTINE [Concomitant]
     Active Substance: VINCRISTINE
     Indication: Acute lymphocytic leukaemia
     Dosage: UNK
     Route: 065

REACTIONS (3)
  - Tumour lysis syndrome [Recovered/Resolved]
  - Acute kidney injury [Unknown]
  - Nephrolithiasis [Recovered/Resolved]
